FAERS Safety Report 21536392 (Version 1)
Quarter: 2022Q4

REPORT INFORMATION
  Report Type: Spontaneous
  Country: US (occurrence: US)
  Receive Date: 20221101
  Receipt Date: 20221101
  Transmission Date: 20230113
  Serious: No
  Sender: FDA-Public Use
  Company Number: US-JNJFOC-20221018101

PATIENT
  Age: 45 Year
  Sex: Male

DRUGS (2)
  1. RISPERDAL [Suspect]
     Active Substance: RISPERIDONE
     Indication: Affective disorder
     Route: 065
     Dates: start: 20220926
  2. RISPERDAL [Suspect]
     Active Substance: RISPERIDONE
     Indication: Depression

REACTIONS (5)
  - Chest pain [Unknown]
  - Chest discomfort [Unknown]
  - Weight increased [Unknown]
  - Body fat disorder [Unknown]
  - Blood prolactin increased [Unknown]
